FAERS Safety Report 18200318 (Version 1)
Quarter: 2020Q3

REPORT INFORMATION
  Report Type: Spontaneous
  Country: US (occurrence: US)
  Receive Date: 20200826
  Receipt Date: 20200826
  Transmission Date: 20201103
  Serious: No
  Sender: FDA-Public Use
  Company Number: US-TEIKOKU PHARMA USA-TPU2020-00736

PATIENT
  Weight: 62.65 kg

DRUGS (6)
  1. ALLEGRA OTC [Concomitant]
  2. FISH OIL [Concomitant]
     Active Substance: FISH OIL
  3. IBUPROFEN. [Concomitant]
     Active Substance: IBUPROFEN
  4. SPIRONOLACTONE. [Concomitant]
     Active Substance: SPIRONOLACTONE
  5. FLONASE [Concomitant]
     Active Substance: FLUTICASONE PROPIONATE
     Indication: HYPERSENSITIVITY
  6. LIDOCAINE PATCH [Suspect]
     Active Substance: LIDOCAINE
     Indication: ARTHRALGIA

REACTIONS (2)
  - Insomnia [Unknown]
  - Impaired quality of life [Unknown]
